FAERS Safety Report 4579993-8 (Version None)
Quarter: 2005Q1

REPORT INFORMATION
  Report Type: 
  Country: None (occurrence: None)
  Receive Date: 20050214
  Receipt Date: 20050202
  Transmission Date: 20050727
  Serious: Yes (Life-Threatening, Hospitalization)
  Sender: FDA-Public Use
  Company Number: US-ROCHE-394642

PATIENT
  Age: 29 Year
  Sex: Female
  Weight: 108 kg

DRUGS (6)
  1. KLONOPIN [Suspect]
     Indication: ANXIETY
     Route: 048
     Dates: start: 20030115
  2. LAMICTAL [Interacting]
     Indication: BIPOLAR DISORDER
     Route: 048
     Dates: start: 20040106
  3. NEURONTIN [Interacting]
     Indication: BIPOLAR DISORDER
     Route: 048
     Dates: start: 20011030
  4. XANAX [Interacting]
     Indication: ANXIETY
     Route: 048
     Dates: start: 20030908
  5. GABITRIL [Interacting]
     Indication: BIPOLAR DISORDER
     Route: 048
     Dates: start: 20040126, end: 20040209
  6. CELEXA [Interacting]
     Indication: DEPRESSION
     Dosage: EVERY NIGHT.
     Route: 048
     Dates: start: 20010115

REACTIONS (7)
  - APHASIA [None]
  - DIZZINESS [None]
  - DRUG INTERACTION [None]
  - DYSTONIA [None]
  - HALLUCINATION [None]
  - HYPOGLYCAEMIA [None]
  - OEDEMA PERIPHERAL [None]
